FAERS Safety Report 12291268 (Version 1)
Quarter: 2016Q2

REPORT INFORMATION
  Report Type: Spontaneous
  Country: IT (occurrence: IT)
  Receive Date: 20160421
  Receipt Date: 20160421
  Transmission Date: 20160815
  Serious: Yes (Hospitalization)
  Sender: FDA-Public Use
  Company Number: IT-UNICHEM LABORATORIES LIMITED-UCM201506-000423

PATIENT
  Age: 75 Year
  Sex: Female

DRUGS (10)
  1. AMILORIDE [Suspect]
     Active Substance: AMILORIDE
  2. BETAHISTINE [Concomitant]
     Active Substance: BETAHISTINE
  3. NITROGLYCERIN. [Concomitant]
     Active Substance: NITROGLYCERIN
     Route: 062
  4. PIROXICAM. [Concomitant]
     Active Substance: PIROXICAM
  5. LERCANIDIPINE [Suspect]
     Active Substance: LERCANIDIPINE
  6. ASPIRIN. [Suspect]
     Active Substance: ASPIRIN
  7. HYDROCHLOROTHIAZIDE. [Suspect]
     Active Substance: HYDROCHLOROTHIAZIDE
  8. BENAZEPRIL [Suspect]
     Active Substance: BENAZEPRIL HYDROCHLORIDE
  9. ALPRAZOLAM. [Concomitant]
     Active Substance: ALPRAZOLAM
  10. ATORVASTATIN [Concomitant]
     Active Substance: ATORVASTATIN

REACTIONS (4)
  - Hyperkalaemia [Recovered/Resolved]
  - Quadriparesis [Unknown]
  - Device malfunction [Unknown]
  - Cardiac disorder [Unknown]
